FAERS Safety Report 6518731-6 (Version None)
Quarter: 2009Q4

REPORT INFORMATION
  Report Type: 
  Country: None (occurrence: None)
  Receive Date: 20091228
  Receipt Date: 20091223
  Transmission Date: 20100525
  Serious: Yes (Death, Other)
  Sender: FDA-Public Use
  Company Number: PHEH2009US18011

PATIENT
  Sex: Female
  Weight: 62 kg

DRUGS (1)
  1. EXJADE [Suspect]
     Indication: CHRONIC LYMPHOCYTIC LEUKAEMIA
     Dosage: 1250 MG DAILY
     Route: 048
     Dates: start: 20090528, end: 20091012

REACTIONS (3)
  - GASTROINTESTINAL HAEMORRHAGE [None]
  - MYELODYSPLASTIC SYNDROME [None]
  - THROMBOCYTOPENIA [None]
